FAERS Safety Report 7024841-X (Version None)
Quarter: 2010Q4

REPORT INFORMATION
  Report Type: 
  Country: None (occurrence: None)
  Receive Date: 20101001
  Receipt Date: 20100916
  Transmission Date: 20110411
  Serious: Yes (Death)
  Sender: FDA-Public Use
  Company Number: GB-GENENTECH-306162

PATIENT
  Age: 50 Year
  Sex: Female

DRUGS (6)
  1. XOLAIR [Suspect]
     Indication: ASTHMA
     Dosage: UNK
     Route: 058
     Dates: start: 20100701
  2. PREDNISOLONE [Concomitant]
     Indication: PRODUCT USED FOR UNKNOWN INDICATION
     Dosage: UNK
  3. AZITHROMYCIN [Concomitant]
     Indication: PRODUCT USED FOR UNKNOWN INDICATION
     Dosage: UNK
  4. OMEPRAZOLE [Concomitant]
     Indication: PRODUCT USED FOR UNKNOWN INDICATION
     Dosage: UNK
  5. SERETIDE [Concomitant]
     Indication: PRODUCT USED FOR UNKNOWN INDICATION
  6. MONTELUKAST [Concomitant]
     Indication: PRODUCT USED FOR UNKNOWN INDICATION
     Dosage: UNK

REACTIONS (2)
  - ASTHMA [None]
  - PULMONARY EMBOLISM [None]
